FAERS Safety Report 6393818-X (Version None)
Quarter: 2009Q4

REPORT INFORMATION
  Report Type: 
  Country: None (occurrence: None)
  Receive Date: 20091008
  Receipt Date: 20090526
  Transmission Date: 20100525
  Serious: Yes (Hospitalization)
  Sender: FDA-Public Use
  Company Number: BR-PFIZER INC-2009218185

PATIENT
  Age: 56 Year

DRUGS (3)
  1. LIPITOR [Suspect]
     Indication: BLOOD CHOLESTEROL INCREASED
     Dosage: 20 MG, 1X/DAY
     Route: 048
     Dates: start: 20090401
  2. CAPTOPRIL [Concomitant]
     Indication: HYPERTENSION
     Dosage: UNK
  3. STUGERON [Concomitant]
     Dosage: UNK
     Dates: start: 20090501

REACTIONS (3)
  - ALOPECIA [None]
  - CARDIAC PACEMAKER REPLACEMENT [None]
  - HAIR DISORDER [None]
